FAERS Safety Report 18393646 (Version 2)
Quarter: 2021Q2

REPORT INFORMATION
  Report Type: Report from Study
  Country: JP (occurrence: JP)
  Receive Date: 20201016
  Receipt Date: 20210604
  Transmission Date: 20210717
  Serious: Yes (Hospitalization)
  Sender: FDA-Public Use
  Company Number: JP-ASTRAZENECA-2020SE90257

PATIENT
  Age: 70 Year
  Sex: Male
  Weight: 94 kg

DRUGS (3)
  1. PICIBANIL [Concomitant]
     Active Substance: OK-432
     Route: 058
  2. IMFINZI [Suspect]
     Active Substance: DURVALUMAB
     Indication: NON-SMALL CELL LUNG CANCER
     Route: 041
     Dates: start: 20200306, end: 20200525
  3. LASIX [Concomitant]
     Active Substance: FUROSEMIDE
     Route: 048

REACTIONS (3)
  - Pleural effusion [Recovered/Resolved]
  - Radiation pneumonitis [Recovering/Resolving]
  - Anaemia [Recovered/Resolved]

NARRATIVE: CASE EVENT DATE: 20200511
